FAERS Safety Report 11753396 (Version 1)
Quarter: 2015Q4

REPORT INFORMATION
  Report Type: Spontaneous
  Country: TR (occurrence: TR)
  Receive Date: 20151119
  Receipt Date: 20151119
  Transmission Date: 20160304
  Serious: Yes (Other)
  Sender: FDA-Public Use
  Company Number: TR-ACTAVIS-2015-25083

PATIENT
  Age: 55 Year
  Sex: Female

DRUGS (3)
  1. MOXIFLOXACIN (UNKNOWN) [Suspect]
     Active Substance: MOXIFLOXACIN
     Indication: DRUG PROVOCATION TEST
     Dosage: UNK
     Route: 048
  2. LEVOFLOXACIN (UNKNOWN) [Suspect]
     Active Substance: LEVOFLOXACIN
     Indication: DRUG PROVOCATION TEST
     Dosage: UNK
     Route: 048
  3. GEMIFLOXACIN [Suspect]
     Active Substance: GEMIFLOXACIN
     Indication: DRUG PROVOCATION TEST
     Dosage: UNK
     Route: 048

REACTIONS (2)
  - Drug cross-reactivity [Recovered/Resolved]
  - Drug eruption [Recovered/Resolved]
